FAERS Safety Report 6107408-7 (Version None)
Quarter: 2009Q1

REPORT INFORMATION
  Report Type: 
  Country: None (occurrence: None)
  Receive Date: 20090227
  Receipt Date: 20080114
  Transmission Date: 20090719
  Serious: Yes (Death)
  Sender: FDA-Public Use
  Company Number: 166313USA

PATIENT
  Age: 44 Year
  Sex: Female

DRUGS (1)
  1. NITROFURANTOIN [Suspect]
     Dosage: (50 MG), ORAL
     Route: 048
     Dates: start: 20040101

REACTIONS (3)
  - HEPATIC CIRRHOSIS [None]
  - PULMONARY TOXICITY [None]
  - TRANSAMINASES INCREASED [None]
